FAERS Safety Report 6213856-7 (Version None)
Quarter: 2009Q2

REPORT INFORMATION
  Report Type: 
  Country: None (occurrence: None)
  Receive Date: 20090601
  Receipt Date: 20090601
  Transmission Date: 20091009
  Serious: Yes (Hospitalization)
  Sender: FDA-Public Use
  Company Number: None

PATIENT
  Age: 52 Year

DRUGS (5)
  1. CYCLOPHOSPHAMIDE [Suspect]
     Indication: DIFFUSE LARGE B-CELL LYMPHOMA
     Dosage: IV 750MG/M2
     Route: 042
     Dates: end: 20090511
  2. ADRIAMYCIN PFS [Suspect]
     Indication: DIFFUSE LARGE B-CELL LYMPHOMA
     Dosage: IV 50MG/M2
     Route: 042
     Dates: end: 20090511
  3. VINCRISTINE [Suspect]
     Indication: DIFFUSE LARGE B-CELL LYMPHOMA
     Dosage: 1.4MG/M2 IV, MAX 2.0 MG
     Route: 042
     Dates: end: 20090511
  4. NEULASTA [Concomitant]
  5. PREDNISONE [Concomitant]

REACTIONS (5)
  - BACTERIA URINE IDENTIFIED [None]
  - DYSPNOEA [None]
  - ESCHERICHIA INFECTION [None]
  - LUNG INFILTRATION [None]
  - PYREXIA [None]
